FAERS Safety Report 23680011 (Version 1)
Quarter: 2024Q1

REPORT INFORMATION
  Report Type: Spontaneous
  Country: KR (occurrence: KR)
  Receive Date: 20240327
  Receipt Date: 20240327
  Transmission Date: 20240410
  Serious: Yes (Hospitalization)
  Sender: FDA-Public Use
  Company Number: KR-BoehringerIngelheim-2024-BI-017484

PATIENT
  Age: 54 Year
  Sex: Female
  Weight: 57.8 kg

DRUGS (7)
  1. JARDIANCE [Suspect]
     Active Substance: EMPAGLIFLOZIN
     Indication: Type 2 diabetes mellitus
     Dosage: UNIT DOSE : 1 DOSAGE FORM
     Dates: start: 20221024
  2. SITAGLIPTIN PHOSPHATE [Concomitant]
     Active Substance: SITAGLIPTIN PHOSPHATE
     Indication: Type 2 diabetes mellitus
     Dosage: UNIT DOSE : 1 DOSAGE FORM
     Dates: start: 20221024
  3. METFORMIN HYDROCHLORIDE [Concomitant]
     Active Substance: METFORMIN HYDROCHLORIDE
     Indication: Type 2 diabetes mellitus
     Dosage: UNIT DOSE : 1 DOSAGE FORM
     Dates: start: 20221024
  4. REBAMIPIDE [Concomitant]
     Active Substance: REBAMIPIDE
     Indication: Gastritis prophylaxis
     Dosage: UNIT DOSE : 1 DOSAGE FORM
     Dates: start: 20220517
  5. S-Pantoprazole Sodium Trihydrate [Concomitant]
     Indication: Gastritis prophylaxis
     Dosage: UNIT DOSE : 1 DOSAGE FORM
     Dates: start: 20220719
  6. ASPIRIN [Concomitant]
     Active Substance: ASPIRIN
     Indication: Cerebral infarction
     Dosage: UNIT DOSE : 1 DOSAGE FORM
     Dates: start: 202006
  7. ATORVASTATIN CALCIUM [Concomitant]
     Active Substance: ATORVASTATIN CALCIUM
     Indication: Dyslipidaemia
     Dosage: UNIT DOSE : 1 DOSAGE FORM
     Dates: start: 202006

REACTIONS (1)
  - Forearm fracture [Recovering/Resolving]

NARRATIVE: CASE EVENT DATE: 20230127
